FAERS Safety Report 26127969 (Version 1)
Quarter: 2025Q4

REPORT INFORMATION
  Report Type: Spontaneous
  Country: US (occurrence: US)
  Receive Date: 20251206
  Receipt Date: 20251206
  Transmission Date: 20260119
  Serious: Yes (Life-Threatening, Hospitalization, Other)
  Sender: USPHARMA
  Company Number: US-USP-004962

PATIENT
  Age: 56 Year

DRUGS (4)
  1. NITROGLYCERIN [Suspect]
     Active Substance: NITROGLYCERIN
     Indication: Arteriospasm coronary
     Route: 022
     Dates: start: 2021
  2. LIDOCAINE [Suspect]
     Active Substance: LIDOCAINE
     Indication: Arteriospasm coronary
     Route: 065
  3. DIETHYLSTILBESTROL [Concomitant]
     Active Substance: DIETHYLSTILBESTROL
     Indication: Gender dysphoria
     Route: 065
     Dates: start: 2021, end: 2024
  4. NITROGLYCERIN [Suspect]
     Active Substance: NITROGLYCERIN
     Indication: Arteriospasm coronary
     Dosage: HIGHER DOSE
     Route: 022
     Dates: start: 2023

REACTIONS (6)
  - Drug ineffective [Unknown]
  - Cardiac arrest [Recovering/Resolving]
  - Cardiogenic shock [Recovering/Resolving]
  - Ventricular tachycardia [Recovering/Resolving]
  - Condition aggravated [Recovering/Resolving]
  - Pulseless electrical activity [Recovering/Resolving]
